FAERS Safety Report 5424457-2 (Version None)
Quarter: 2007Q3

REPORT INFORMATION
  Report Type: 
  Country: None (occurrence: None)
  Receive Date: 20070822
  Receipt Date: 20070807
  Transmission Date: 20080115
  Serious: Yes (Hospitalization)
  Sender: FDA-Public Use
  Company Number: 2007-03745

PATIENT
  Age: 30 Year
  Sex: Male

DRUGS (1)
  1. FORTAMET [Suspect]
     Indication: TYPE 2 DIABETES MELLITUS
     Dosage: 3 TABLET, TID, ORAL
     Route: 048
     Dates: start: 20070101, end: 20070101

REACTIONS (7)
  - ABDOMINAL DISCOMFORT [None]
  - ALCOHOLISM [None]
  - DIARRHOEA [None]
  - HEPATIC STEATOSIS [None]
  - ILL-DEFINED DISORDER [None]
  - PNEUMOPERITONEUM [None]
  - VOMITING [None]
